FAERS Safety Report 11865695 (Version 2)
Quarter: 2015Q4

REPORT INFORMATION
  Report Type: Report from Study
  Country: NL (occurrence: NL)
  Receive Date: 20151223
  Receipt Date: 20151230
  Transmission Date: 20160305
  Serious: Yes (Other)
  Sender: FDA-Public Use
  Company Number: NL-UCBSA-2015042409

PATIENT

DRUGS (5)
  1. PACLITAXEL. [Suspect]
     Active Substance: PACLITAXEL
     Indication: NON-SMALL CELL LUNG CANCER STAGE IV
     Dosage: 200 MG/M2
  2. BEVACIZUMAB [Suspect]
     Active Substance: BEVACIZUMAB
     Indication: NON-SMALL CELL LUNG CANCER STAGE IV
     Dosage: 15 MG/KG
  3. GLYCERYL TRINITRATE [Suspect]
     Active Substance: NITROGLYCERIN
     Indication: NON-SMALL CELL LUNG CANCER STAGE IV
     Dosage: 15 MG/24 HRS
     Route: 062
  4. GLYCERYL TRINITRATE [Suspect]
     Active Substance: NITROGLYCERIN
     Indication: OFF LABEL USE
  5. CARBOPLATIN. [Suspect]
     Active Substance: CARBOPLATIN
     Indication: NON-SMALL CELL LUNG CANCER STAGE IV
     Dosage: 4 CYCLES

REACTIONS (27)
  - Embolism [Unknown]
  - Platelet count decreased [Unknown]
  - Pain [Unknown]
  - Decreased appetite [Unknown]
  - Mucosal inflammation [Unknown]
  - Infection [Unknown]
  - Nausea [Unknown]
  - Haematuria [Unknown]
  - Hypertension [Unknown]
  - Vomiting [Unknown]
  - Dehydration [Unknown]
  - Febrile neutropenia [Unknown]
  - Headache [Unknown]
  - Epistaxis [Unknown]
  - Neuropathy peripheral [Unknown]
  - Dry skin [Unknown]
  - Transaminases increased [Unknown]
  - Off label use [Unknown]
  - Pulmonary haemorrhage [Unknown]
  - Large intestine perforation [Unknown]
  - Diarrhoea [Unknown]
  - Neutropenia [Unknown]
  - Anaemia [Unknown]
  - Fatigue [Unknown]
  - General physical health deterioration [Unknown]
  - Cough [Unknown]
  - Proteinuria [Unknown]
